FAERS Safety Report 12402536 (Version 2)
Quarter: 2016Q2

REPORT INFORMATION
  Report Type: Spontaneous
  Country: US (occurrence: US)
  Receive Date: 20160525
  Receipt Date: 20160630
  Transmission Date: 20160815
  Serious: Yes (Hospitalization, Other)
  Sender: FDA-Public Use
  Company Number: US-PFIZER INC-2016266369

PATIENT
  Age: 56 Year
  Sex: Male

DRUGS (3)
  1. BUPIVACAINE HYDROCHLORIDE. [Suspect]
     Active Substance: BUPIVACAINE HYDROCHLORIDE
     Indication: PAIN
     Dosage: UNK, (5 CC OF 0.75% 7.5 MG/ML)
     Dates: start: 20160516
  2. DEXAMETHASONE. [Concomitant]
     Active Substance: DEXAMETHASONE
     Dosage: UNK, (3 CC)
     Dates: start: 20160516
  3. TORADOL [Concomitant]
     Active Substance: KETOROLAC TROMETHAMINE
     Dosage: UNK, (2 CC)
     Dates: start: 20160516

REACTIONS (8)
  - Delayed recovery from anaesthesia [Unknown]
  - Hypoaesthesia [Recovered/Resolved]
  - Product quality issue [Recovered/Resolved]
  - Presyncope [Recovered/Resolved]
  - Blood pressure decreased [Recovered/Resolved]
  - Dehydration [Unknown]
  - Heart rate decreased [Recovered/Resolved]
  - Nausea [Recovered/Resolved]

NARRATIVE: CASE EVENT DATE: 20160516
